FAERS Safety Report 8484620-3 (Version None)
Quarter: 2012Q3

REPORT INFORMATION
  Report Type: 
  Country: None (occurrence: None)
  Receive Date: 20120703
  Receipt Date: 20120517
  Transmission Date: 20120928
  Serious: No
  Sender: FDA-Public Use
  Company Number: US-TEVA-339432USA

PATIENT
  Sex: Female
  Weight: 81.72 kg

DRUGS (10)
  1. COLECALCIFEROL [Concomitant]
     Indication: VITAMIN D DEFICIENCY
     Route: 048
  2. ESTRADIOL [Concomitant]
     Indication: MENOPAUSE
     Route: 061
  3. NUVIGIL [Suspect]
     Indication: SLEEP APNOEA SYNDROME
     Dosage: 150 MILLIGRAM;
     Route: 048
     Dates: start: 20120515
  4. DULOXETINE HYDROCHLORIDE [Concomitant]
     Indication: FIBROMYALGIA
     Route: 048
  5. ALPRAZOLAM [Concomitant]
     Indication: ANXIETY
     Route: 048
     Dates: start: 20110101
  6. BETAMETHASONE [Concomitant]
     Indication: PSORIASIS
     Route: 061
  7. ROSUVASTATIN [Concomitant]
     Indication: BLOOD CHOLESTEROL
     Route: 048
  8. CLOTRIMAZOLE [Concomitant]
     Indication: CANDIDIASIS
     Route: 048
  9. METHYLPREDNISOLONE [Concomitant]
     Indication: PSORIATIC ARTHROPATHY
     Dosage: DOSE PACK
     Route: 048
  10. OXYCODONE HCL [Concomitant]
     Indication: PAIN
     Route: 048

REACTIONS (7)
  - INITIAL INSOMNIA [None]
  - STRESS [None]
  - DRUG INEFFECTIVE [None]
  - FATIGUE [None]
  - DIZZINESS [None]
  - MENTAL IMPAIRMENT [None]
  - APHASIA [None]
